FAERS Safety Report 22088356 (Version 3)
Quarter: 2023Q2

REPORT INFORMATION
  Report Type: Report from Study
  Country: DE (occurrence: None)
  Receive Date: 20230313
  Receipt Date: 20230406
  Transmission Date: 20230722
  Serious: Yes (Hospitalization)
  Sender: FDA-Public Use
  Company Number: DE-ROCHE-3303398

PATIENT
  Age: 72 Year
  Sex: Female

DRUGS (5)
  1. OBINUTUZUMAB [Suspect]
     Active Substance: OBINUTUZUMAB
     Indication: Chronic lymphocytic leukaemia
     Dosage: DATE OF LAST DOSE WAS 1000 MG ON 13/FEB/2023
     Route: 042
     Dates: start: 20220926
  2. VENETOCLAX [Suspect]
     Active Substance: VENETOCLAX
     Indication: Chronic lymphocytic leukaemia
     Dosage: DATE OF LAST DOSE WAS 400MG: 06/MAR/2023
     Route: 048
     Dates: start: 20221017
  3. ELIQUIS [Concomitant]
     Active Substance: APIXABAN
  4. CANDESARTAN [Concomitant]
     Active Substance: CANDESARTAN
  5. ROSUVASTATIN [Concomitant]
     Active Substance: ROSUVASTATIN

REACTIONS (1)
  - Peritonsillar abscess [Recovered/Resolved]

NARRATIVE: CASE EVENT DATE: 20230306
